FAERS Safety Report 5484664-X (Version None)
Quarter: 2007Q4

REPORT INFORMATION
  Report Type: 
  Country: None (occurrence: None)
  Receive Date: 20071010
  Receipt Date: 20071001
  Transmission Date: 20080405
  Serious: Yes (Other)
  Sender: FDA-Public Use
  Company Number: 07H-163-0313275-00

PATIENT
  Age: 39 Year
  Sex: Female

DRUGS (2)
  1. ETOMIDATE [Suspect]
     Indication: INDUCTION OF ANAESTHESIA
     Dosage: 18 MG, 18 MG, 90 MG, 18 MG, 2 MG
  2. SUCCINYLCHOLINE CHLORIDE [Concomitant]

REACTIONS (3)
  - CLONUS [None]
  - GRAND MAL CONVULSION [None]
  - MYOCLONUS [None]
